FAERS Safety Report 4902034-7 (Version None)
Quarter: 2006Q1

REPORT INFORMATION
  Report Type: 
  Country: None (occurrence: None)
  Receive Date: 20060202
  Receipt Date: 20060120
  Transmission Date: 20060701
  Serious: Yes (Hospitalization, Other)
  Sender: FDA-Public Use
  Company Number: KII-2006-0020957

PATIENT
  Age: 35 Year
  Sex: Male

DRUGS (5)
  1. MORPHINE SULFATE [Suspect]
     Indication: DRUG USE FOR UNKNOWN INDICATION
     Dosage: ORAL
     Route: 048
  2. HYDROCODONE BITARTRATE [Suspect]
     Indication: DRUG USE FOR UNKNOWN INDICATION
     Dosage: ORAL
     Route: 048
  3. SSRI() [Suspect]
     Indication: DRUG USE FOR UNKNOWN INDICATION
     Dosage: ORAL
     Route: 048
  4. BENZODIAZEPINE DERIVATIVES() [Suspect]
     Indication: DRUG USE FOR UNKNOWN INDICATION
  5. MARIJUANA(CANNABIS) [Suspect]
     Indication: INTENTIONAL DRUG MISUSE

REACTIONS (5)
  - AGITATION [None]
  - DRUG ABUSER [None]
  - LOBAR PNEUMONIA [None]
  - MULTIPLE DRUG OVERDOSE [None]
  - PATIENT RESTRAINT [None]
